FAERS Safety Report 25396880 (Version 1)
Quarter: 2025Q2

REPORT INFORMATION
  Report Type: Spontaneous
  Country: US (occurrence: US)
  Receive Date: 20250604
  Receipt Date: 20250604
  Transmission Date: 20250717
  Serious: Yes (Hospitalization)
  Sender: AMGEN
  Company Number: US-AMGEN-USASP2025108805

PATIENT
  Age: 41 Year
  Sex: Female

DRUGS (3)
  1. PREDNISONE [Suspect]
     Active Substance: PREDNISONE
     Indication: Immunosuppressant drug therapy
     Dosage: 5 MILLIGRAM, QD
     Route: 065
  2. PREDNISONE [Suspect]
     Active Substance: PREDNISONE
     Route: 065
  3. TACROLIMUS [Concomitant]
     Active Substance: TACROLIMUS

REACTIONS (3)
  - Human herpesvirus 6 viraemia [Not Recovered/Not Resolved]
  - Leukopenia [Recovering/Resolving]
  - Heart transplant rejection [Unknown]
